FAERS Safety Report 18806391 (Version 2)
Quarter: 2021Q1

REPORT INFORMATION
  Report Type: Report from Study
  Country: US (occurrence: US)
  Receive Date: 20210128
  Receipt Date: 20210210
  Transmission Date: 20210419
  Serious: Yes (Hospitalization, Other)
  Sender: FDA-Public Use
  Company Number: US-JAZZ-2021-US-000981

PATIENT
  Age: 37 Year
  Sex: Female

DRUGS (19)
  1. NORETHINDRONE [NORETHISTERONE] [Concomitant]
     Active Substance: NORETHINDRONE
  2. CHANTIX [Concomitant]
     Active Substance: VARENICLINE TARTRATE
  3. XYREM [Suspect]
     Active Substance: SODIUM OXYBATE
     Dosage: DOSE ADJUSTMENT
     Route: 048
     Dates: start: 200907, end: 201502
  4. BUPROPION. [Concomitant]
     Active Substance: BUPROPION
  5. FLAXSEED [Concomitant]
     Active Substance: FLAX SEED
  6. ADVIL COLD AND SINUS [Concomitant]
     Active Substance: IBUPROFEN\PSEUDOEPHEDRINE HYDROCHLORIDE
  7. XYREM [Suspect]
     Active Substance: SODIUM OXYBATE
     Indication: NARCOLEPSY
     Dosage: 4.5 GRAM, BID
     Route: 048
     Dates: start: 200801, end: 200906
  8. LIDOCAINE. [Concomitant]
     Active Substance: LIDOCAINE
  9. METHYLPHENIDATE. [Concomitant]
     Active Substance: METHYLPHENIDATE
  10. NALTREXONE [Concomitant]
     Active Substance: NALTREXONE
  11. MAGNESIUM OXIDE. [Concomitant]
     Active Substance: MAGNESIUM OXIDE
  12. XYREM [Suspect]
     Active Substance: SODIUM OXYBATE
     Dosage: 4.5 GRAM, BID
     Route: 048
     Dates: start: 201502
  13. NUVIGIL [Concomitant]
     Active Substance: ARMODAFINIL
  14. MODAFINIL. [Concomitant]
     Active Substance: MODAFINIL
  15. VICODIN [Concomitant]
     Active Substance: ACETAMINOPHEN\HYDROCODONE BITARTRATE
  16. AVIANE [Concomitant]
     Active Substance: ETHINYL ESTRADIOL\LEVONORGESTREL
  17. VITAMIN D3 [Concomitant]
     Active Substance: CHOLECALCIFEROL
  18. FLUOCINONIDE. [Concomitant]
     Active Substance: FLUOCINONIDE
  19. ADVIL [Concomitant]
     Active Substance: IBUPROFEN

REACTIONS (2)
  - Depression [Unknown]
  - Renal mass [Unknown]

NARRATIVE: CASE EVENT DATE: 20141202
